FAERS Safety Report 18229981 (Version 1)
Quarter: 2020Q3

REPORT INFORMATION
  Report Type: Spontaneous
  Country: AL (occurrence: AL)
  Receive Date: 20200903
  Receipt Date: 20200903
  Transmission Date: 20201103
  Serious: Yes (Hospitalization, Other)
  Sender: FDA-Public Use
  Company Number: AL-ENDO PHARMACEUTICALS INC-2020-005786

PATIENT
  Age: 57 Year
  Sex: Female

DRUGS (1)
  1. OLANZAPINE. [Suspect]
     Active Substance: OLANZAPINE
     Indication: MAJOR DEPRESSION
     Dosage: UNK UNKNOWN, UNKNOWN
     Route: 065

REACTIONS (4)
  - Off label use [Unknown]
  - Hyperglycaemic seizure [Recovering/Resolving]
  - Brain oedema [Recovering/Resolving]
  - Hyperglycaemia [Recovering/Resolving]
